FAERS Safety Report 6095494-2 (Version None)
Quarter: 2009Q1

REPORT INFORMATION
  Report Type: 
  Country: None (occurrence: None)
  Receive Date: 20090227
  Receipt Date: 20080414
  Transmission Date: 20090719
  Serious: No
  Sender: FDA-Public Use
  Company Number: A0722595A

PATIENT
  Sex: Female

DRUGS (2)
  1. LAMICTAL [Suspect]
     Dosage: 12.5MG ALTERNATE DAYS
     Route: 048
     Dates: start: 20080101
  2. PHENOBARBITAL TAB [Concomitant]

REACTIONS (1)
  - RASH GENERALISED [None]
